FAERS Safety Report 24596700 (Version 8)
Quarter: 2025Q2

REPORT INFORMATION
  Report Type: Spontaneous
  Country: US (occurrence: US)
  Receive Date: 20241110
  Receipt Date: 20250528
  Transmission Date: 20250716
  Serious: No
  Sender: SANOFI AVENTIS
  Company Number: US-SA-2024SA305277

PATIENT
  Age: 61 Year
  Sex: Female

DRUGS (2)
  1. DUPIXENT [Suspect]
     Active Substance: DUPILUMAB
     Indication: Dermatitis atopic
     Route: 058
     Dates: start: 202409, end: 202409
  2. DUPIXENT [Suspect]
     Active Substance: DUPILUMAB
     Dosage: 300 MG, QOW
     Route: 058
     Dates: start: 2024

REACTIONS (8)
  - Eye disorder [Unknown]
  - Blood potassium decreased [Unknown]
  - Dehydration [Unknown]
  - Back disorder [Unknown]
  - Muscle strain [Recovering/Resolving]
  - Erythema [Unknown]
  - Injection site erythema [Unknown]
  - Back pain [Unknown]

NARRATIVE: CASE EVENT DATE: 20240101
